FAERS Safety Report 26073121 (Version 1)
Quarter: 2025Q4

REPORT INFORMATION
  Report Type: Spontaneous
  Country: US (occurrence: US)
  Receive Date: 20251121
  Receipt Date: 20251121
  Transmission Date: 20260118
  Serious: Yes (Other)
  Sender: SUNOVION
  Company Number: US-SMPA-2025SPA015414

PATIENT
  Age: 55 Year
  Sex: Female

DRUGS (7)
  1. APTIOM [Suspect]
     Active Substance: ESLICARBAZEPINE ACETATE
     Indication: Product used for unknown indication
     Dosage: UNK
     Route: 048
  2. APTIOM [Suspect]
     Active Substance: ESLICARBAZEPINE ACETATE
     Dosage: 200 MG
     Route: 048
  3. APTIOM [Suspect]
     Active Substance: ESLICARBAZEPINE ACETATE
     Dosage: 400 MG
     Route: 048
  4. APTIOM [Suspect]
     Active Substance: ESLICARBAZEPINE ACETATE
     Dosage: 600 MG
     Route: 048
  5. CARBAMAZEPINE [Concomitant]
     Active Substance: CARBAMAZEPINE
     Dosage: UNK
  6. VITAMIN D [Concomitant]
     Active Substance: VITAMIN D NOS
     Dosage: HIGHER DOSES
  7. KEPPRA [Concomitant]
     Active Substance: LEVETIRACETAM

REACTIONS (15)
  - Spinal fracture [Unknown]
  - Haemangioma [Unknown]
  - Hyponatraemia [Unknown]
  - Fall [Unknown]
  - Vertigo [Unknown]
  - Headache [Unknown]
  - Blood pressure increased [Unknown]
  - Hypotension [Unknown]
  - Dyskinesia [Unknown]
  - Dysphagia [Unknown]
  - Dyslexia [Unknown]
  - Sinusitis [Unknown]
  - Nervous system disorder [Unknown]
  - Tinnitus [Unknown]
  - Wrong technique in product usage process [Unknown]

NARRATIVE: CASE EVENT DATE: 20241101
